FAERS Safety Report 13466769 (Version 1)
Quarter: 2017Q2

REPORT INFORMATION
  Report Type: Other
  Country: CA (occurrence: CA)
  Receive Date: 20170421
  Receipt Date: 20170421
  Transmission Date: 20170830
  Serious: Yes (Other)
  Sender: FDA-Public Use
  Company Number: CA-APOTEX-2017AP010303

PATIENT
  Sex: Female
  Weight: 2 kg

DRUGS (4)
  1. NICOTINE TRANSDERMAL SYSTEM [Suspect]
     Active Substance: NICOTINE
     Indication: PRODUCT USED FOR UNKNOWN INDICATION
     Route: 064
  2. ALCOHOL. [Suspect]
     Active Substance: ALCOHOL
     Indication: PRODUCT USED FOR UNKNOWN INDICATION
     Route: 064
  3. SUBOXONE [Suspect]
     Active Substance: BUPRENORPHINE HYDROCHLORIDE\NALOXONE HYDROCHLORIDE
     Dosage: 3 MG, QD
     Route: 064
  4. SUBOXONE [Suspect]
     Active Substance: BUPRENORPHINE HYDROCHLORIDE\NALOXONE HYDROCHLORIDE
     Indication: DRUG USE DISORDER
     Dosage: 3 MG, QD
     Route: 063

REACTIONS (8)
  - Foetal exposure during pregnancy [Not Recovered/Not Resolved]
  - Low birth weight baby [Not Recovered/Not Resolved]
  - Congenital naevus [Not Recovered/Not Resolved]
  - Grunting [Not Recovered/Not Resolved]
  - Exposure during breast feeding [Not Recovered/Not Resolved]
  - Jaundice neonatal [Not Recovered/Not Resolved]
  - Poor feeding infant [Not Recovered/Not Resolved]
  - Caput succedaneum [Not Recovered/Not Resolved]
